FAERS Safety Report 16077558 (Version 10)
Quarter: 2024Q1

REPORT INFORMATION
  Report Type: Spontaneous
  Country: FR (occurrence: FR)
  Receive Date: 20190315
  Receipt Date: 20240205
  Transmission Date: 20240410
  Serious: Yes (Life-Threatening, Hospitalization, Other)
  Sender: FDA-Public Use
  Company Number: FR-SA-2019SA016365

PATIENT
  Age: 45 Year
  Sex: Female
  Weight: 119 kg

DRUGS (37)
  1. MEROPENEM [Suspect]
     Active Substance: MEROPENEM
     Indication: Enterobacter infection
     Dosage: 2 G, 3X/DAY
     Route: 042
     Dates: start: 20181126, end: 20181128
  2. MEROPENEM [Suspect]
     Active Substance: MEROPENEM
     Indication: Pathogen resistance
     Dosage: 2 G, 2X/DAY
     Route: 042
     Dates: start: 20181229, end: 20190105
  3. MEROPENEM [Suspect]
     Active Substance: MEROPENEM
     Indication: Meningitis meningococcal
     Dosage: 2 G
     Route: 065
  4. MEROPENEM [Suspect]
     Active Substance: MEROPENEM
     Indication: Osteitis
     Dosage: 2 G, 1X/DAY
     Dates: start: 20190125, end: 20190125
  5. PANTOPRAZOLE [Suspect]
     Active Substance: PANTOPRAZOLE
     Indication: Prophylaxis against gastrointestinal ulcer
     Dosage: 20 MG, 1X/DAY
     Route: 048
     Dates: start: 20180120, end: 20181113
  6. PANTOPRAZOLE [Suspect]
     Active Substance: PANTOPRAZOLE
     Dosage: 20 MG, 1X/DAY
     Route: 048
     Dates: start: 20181020, end: 20181113
  7. PANTOPRAZOLE [Suspect]
     Active Substance: PANTOPRAZOLE
     Dosage: 20 MG, 1X/DAY
     Route: 048
     Dates: start: 20181116, end: 20181230
  8. PANTOPRAZOLE [Suspect]
     Active Substance: PANTOPRAZOLE
     Dosage: 40 MG, 1X/DAY
     Route: 048
     Dates: start: 20181121, end: 20190101
  9. VANCOMYCIN HYDROCHLORIDE [Suspect]
     Active Substance: VANCOMYCIN HYDROCHLORIDE
     Indication: Osteitis
     Dosage: UNK
     Route: 042
     Dates: start: 20181126, end: 20181228
  10. VANCOMYCIN HYDROCHLORIDE [Suspect]
     Active Substance: VANCOMYCIN HYDROCHLORIDE
     Indication: Meningitis
  11. FERROUS SULFATE [Suspect]
     Active Substance: FERROUS SULFATE
     Indication: Iron deficiency
     Dosage: 80 MG, 2X/DAY
     Route: 048
     Dates: start: 20181121, end: 20190102
  12. FOSFOMYCIN [Suspect]
     Active Substance: FOSFOMYCIN
     Indication: Infection
     Dosage: 4 G, 4X/DAY
     Route: 042
     Dates: start: 20181229, end: 20190101
  13. FOSFOMYCIN [Suspect]
     Active Substance: FOSFOMYCIN
     Indication: Meningitis meningococcal
     Dosage: 4 G, 4X/DAY
     Route: 042
     Dates: start: 20190102, end: 20190107
  14. FOSFOMYCIN [Suspect]
     Active Substance: FOSFOMYCIN
     Dosage: 4 G, 4X/DAY
     Route: 042
     Dates: start: 20190108, end: 20190108
  15. FOSFOMYCIN [Suspect]
     Active Substance: FOSFOMYCIN
     Dosage: 16 G, 1X/DAY
     Route: 042
     Dates: start: 20190125, end: 20190131
  16. FOSFOMYCIN [Suspect]
     Active Substance: FOSFOMYCIN
     Dosage: 4 G, 4X/DAY
  17. CASPOFUNGIN [Suspect]
     Active Substance: CASPOFUNGIN
     Dosage: UNK
     Dates: start: 20190108, end: 20190118
  18. FERROUS SULFATE [Suspect]
     Active Substance: FERROUS SULFATE
     Dosage: UNK
  19. FOSFOMYCIN [Concomitant]
     Active Substance: FOSFOMYCIN
     Indication: Meningitis
     Dosage: 4 G, 4X/DAY
     Route: 042
     Dates: start: 20181229, end: 20190101
  20. FOSFOMYCIN [Concomitant]
     Active Substance: FOSFOMYCIN
     Indication: Osteitis
     Dosage: 4 G, 1X/DAY
     Route: 042
     Dates: start: 20181229, end: 20190101
  21. FOSFOMYCIN [Concomitant]
     Active Substance: FOSFOMYCIN
     Dosage: 4 G, 2X/DAY
     Route: 042
     Dates: start: 20190102, end: 20190107
  22. FOSFOMYCIN [Concomitant]
     Active Substance: FOSFOMYCIN
     Dosage: 4 G, 3X/DAY
     Route: 042
     Dates: start: 20190108, end: 20190108
  23. FOSFOMYCIN [Concomitant]
     Active Substance: FOSFOMYCIN
     Dosage: 4 G, 3X/DAY
     Route: 042
     Dates: start: 20190108, end: 20190108
  24. CITALOPRAM [Concomitant]
     Active Substance: CITALOPRAM HYDROBROMIDE
     Dosage: 20 MG
     Dates: start: 20190102, end: 20190131
  25. SODIUM FEREDETATE [Concomitant]
     Active Substance: SODIUM FEREDETATE
     Dosage: 15 ML, 2X/DAY
  26. FERROUS FUMARATE [Concomitant]
     Active Substance: FERROUS FUMARATE
     Dosage: UNK
     Dates: start: 20190103
  27. AZTREONAM [Concomitant]
     Active Substance: AZTREONAM
     Dosage: 2 G, 3X/DAY
     Dates: start: 20190108
  28. LANSOPRAZOLE [Concomitant]
     Active Substance: LANSOPRAZOLE
     Dosage: 15 MG, 1X/DAY
     Dates: start: 20190101
  29. BISOPROLOL [Concomitant]
     Active Substance: BISOPROLOL\BISOPROLOL FUMARATE
     Dosage: UNK
     Route: 048
  30. GADOTERATE MEGLUMINE [Concomitant]
     Active Substance: GADOTERATE MEGLUMINE
     Dosage: UNK
  31. COLISTIN [Concomitant]
     Active Substance: COLISTIN
     Dosage: UNK
  32. VANCOMYCIN [Concomitant]
     Active Substance: VANCOMYCIN
     Indication: Enterobacter infection
     Dosage: UNK
     Route: 042
     Dates: start: 20181126, end: 20181228
  33. VANCOMYCIN [Concomitant]
     Active Substance: VANCOMYCIN
     Indication: Pathogen resistance
  34. VANCOMYCIN [Concomitant]
     Active Substance: VANCOMYCIN
     Indication: Meningitis meningococcal
  35. POTASSIUM [Concomitant]
     Active Substance: POTASSIUM
     Dosage: UNK
  36. LEVETIRACETAM [Concomitant]
     Active Substance: LEVETIRACETAM
     Dosage: UNK
  37. ENOXAPARIN [Concomitant]
     Active Substance: ENOXAPARIN
     Dosage: UNK

REACTIONS (21)
  - Drug reaction with eosinophilia and systemic symptoms [Recovering/Resolving]
  - Renal failure [Recovering/Resolving]
  - Type IV hypersensitivity reaction [Recovering/Resolving]
  - Pruritus [Not Recovered/Not Resolved]
  - Vancomycin infusion reaction [Not Recovered/Not Resolved]
  - Blood albumin decreased [Unknown]
  - Skin exfoliation [Not Recovered/Not Resolved]
  - Oedema peripheral [Not Recovered/Not Resolved]
  - Skin weeping [Not Recovered/Not Resolved]
  - Rash [Not Recovered/Not Resolved]
  - Immunoglobulins decreased [Unknown]
  - Erythema [Not Recovered/Not Resolved]
  - Agranulocytosis [Recovering/Resolving]
  - Blood creatinine increased [Unknown]
  - Blood urea increased [Unknown]
  - Hepatic cytolysis [Recovered/Resolved]
  - Neutropenia [Recovered/Resolved]
  - Neutrophil count decreased [Unknown]
  - Eosinophilia [Recovering/Resolving]
  - Lymphopenia [Unknown]
  - Off label use [Unknown]

NARRATIVE: CASE EVENT DATE: 20181121
